FAERS Safety Report 18982713 (Version 1)
Quarter: 2021Q1

REPORT INFORMATION
  Report Type: Spontaneous
  Country: NL (occurrence: NL)
  Receive Date: 20210308
  Receipt Date: 20210308
  Transmission Date: 20210420
  Serious: Yes (Hospitalization, Other)
  Sender: FDA-Public Use
  Company Number: NVSC2021NL050635

PATIENT
  Sex: Male

DRUGS (1)
  1. ENTRESTO [Suspect]
     Active Substance: SACUBITRIL\VALSARTAN
     Indication: PRODUCT USED FOR UNKNOWN INDICATION
     Dosage: UNK UNK, UNKNOWN
     Route: 065

REACTIONS (4)
  - Coronary artery dissection [Unknown]
  - Therapeutic product effect decreased [Unknown]
  - Infarction [Unknown]
  - Cardiac disorder [Unknown]

NARRATIVE: CASE EVENT DATE: 2019
